FAERS Safety Report 7951426-0 (Version None)
Quarter: 2011Q4

REPORT INFORMATION
  Report Type: 
  Country: None (occurrence: None)
  Receive Date: 20111201
  Receipt Date: 20111129
  Transmission Date: 20120403
  Serious: Yes (Life-Threatening, Other)
  Sender: FDA-Public Use
  Company Number: JP-PFIZER INC-2011273701

PATIENT
  Age: 84 Year
  Sex: Female

DRUGS (3)
  1. ALDACTONE [Suspect]
     Indication: CARDIAC FAILURE CHRONIC
  2. ALDACTONE [Suspect]
     Indication: HYPERTENSION
     Route: 048
  3. MICARDIS [Suspect]
     Indication: HYPERTENSION
     Route: 048

REACTIONS (3)
  - HYPERKALAEMIA [None]
  - BLOOD CREATININE INCREASED [None]
  - DRUG INTERACTION [None]
